FAERS Safety Report 9359275 (Version 3)
Quarter: 2013Q4

REPORT INFORMATION
  Report Type: Spontaneous
  Country: US (occurrence: US)
  Receive Date: 20130620
  Receipt Date: 20131007
  Transmission Date: 20140711
  Serious: Yes (Death, Hospitalization)
  Sender: FDA-Public Use
  Company Number: US-FRI-1000046037

PATIENT
  Age: 69 Year
  Sex: Female

DRUGS (9)
  1. CELEXA [Suspect]
     Indication: DEPRESSION
     Dosage: 20 MG
     Route: 048
  2. ZYVOX [Suspect]
     Indication: PNEUMONIA
     Dosage: 1200 MG
     Route: 048
     Dates: start: 201304, end: 201304
  3. ZYVOX [Suspect]
     Indication: PULMONARY FIBROSIS
  4. ASPIRIN [Concomitant]
     Dosage: 81 MG
     Route: 048
  5. LOVENOX [Concomitant]
     Dosage: 40 MG
     Route: 058
  6. FLUCONAZOLE [Concomitant]
     Dosage: 200 MG
     Route: 042
  7. MEROPENEM [Concomitant]
     Dosage: 1500 MG
     Route: 042
  8. METHYLPREDNISOLONE [Concomitant]
     Dosage: 30 MG
     Route: 042
  9. FLAGYL [Concomitant]
     Dosage: 1500 MG
     Route: 042

REACTIONS (6)
  - Pulmonary fibrosis [Fatal]
  - Serotonin syndrome [Recovered/Resolved]
  - Confusional state [Recovered/Resolved]
  - Fall [Recovered/Resolved]
  - Headache [Recovered/Resolved]
  - Hallucination [Recovered/Resolved]
